FAERS Safety Report 4940100-0 (Version None)
Quarter: 2006Q1

REPORT INFORMATION
  Report Type: 
  Country: None (occurrence: None)
  Receive Date: 20060310
  Receipt Date: 20060228
  Transmission Date: 20060701
  Serious: Yes (Hospitalization)
  Sender: FDA-Public Use
  Company Number: AU-ROCHE-438265

PATIENT
  Age: 66 Year
  Sex: Male

DRUGS (4)
  1. CEFTRIAXONE SODIUM [Suspect]
     Indication: DRUG USE FOR UNKNOWN INDICATION
     Dosage: GIVEN TWO TIMES.
     Route: 042
     Dates: start: 20050809, end: 20050813
  2. AUGMENTIN FORTE DUO [Suspect]
     Indication: DRUG USE FOR UNKNOWN INDICATION
     Dosage: GIVEN TWO TIMES.
     Route: 048
     Dates: start: 20050808, end: 20050808
  3. RAMIPRIL [Suspect]
     Indication: DRUG USE FOR UNKNOWN INDICATION
     Route: 048
  4. METRONIDAZOLE [Concomitant]
     Dosage: GIVEN TWO TIMES.
     Route: 042
     Dates: start: 20050809, end: 20050813

REACTIONS (2)
  - ANGIONEUROTIC OEDEMA [None]
  - RASH MORBILLIFORM [None]
